FAERS Safety Report 11624373 (Version 1)
Quarter: 2015Q4

REPORT INFORMATION
  Report Type: Spontaneous
  Country: US (occurrence: US)
  Receive Date: 20151013
  Receipt Date: 20151013
  Transmission Date: 20160304
  Serious: No
  Sender: FDA-Public Use
  Company Number: US-TEVA-597677USA

PATIENT
  Sex: Male
  Weight: 63.56 kg

DRUGS (1)
  1. OMEGA-3 ACIDS [Suspect]
     Active Substance: OMEGA-3 FATTY ACIDS
     Indication: BLOOD TRIGLYCERIDES INCREASED
     Dates: start: 201412

REACTIONS (4)
  - Blood cholesterol increased [Unknown]
  - Drug ineffective [Unknown]
  - Product substitution issue [Unknown]
  - Blood triglycerides increased [Unknown]
